FAERS Safety Report 8030101-0 (Version None)
Quarter: 2012Q1

REPORT INFORMATION
  Report Type: 
  Country: None (occurrence: None)
  Receive Date: 20120109
  Receipt Date: 20111231
  Transmission Date: 20120608
  Serious: Yes (Other)
  Sender: FDA-Public Use
  Company Number: US-BAYER-2011-050535

PATIENT
  Age: 22 Year
  Sex: Female
  Weight: 86.168 kg

DRUGS (2)
  1. YAZ [Suspect]
     Indication: ACNE
     Dosage: UNK
     Dates: start: 20090101, end: 20100101
  2. YASMIN [Suspect]
     Indication: CONTRACEPTION

REACTIONS (4)
  - PAIN [None]
  - INJURY [None]
  - BILE DUCT STONE [None]
  - CHOLECYSTITIS ACUTE [None]
